FAERS Safety Report 10653854 (Version 1)
Quarter: 2014Q4

REPORT INFORMATION
  Report Type: Spontaneous
  Country: US (occurrence: None)
  Receive Date: 20141212
  Receipt Date: 20141212
  Transmission Date: 20150529
  Serious: No
  Sender: FDA-Public Use
  Company Number: None

PATIENT
  Age: 57 Year
  Sex: Male
  Weight: 113.4 kg

DRUGS (9)
  1. LITHIUM [Concomitant]
     Active Substance: LITHIUM CARBONATE
  2. CLIPAZOID [Concomitant]
  3. RISPERIDONE. [Suspect]
     Active Substance: RISPERIDONE
     Indication: PSYCHOTIC DISORDER
  4. LISINOPRIL. [Concomitant]
     Active Substance: LISINOPRIL
  5. LEVOTHYROXINE [Concomitant]
     Active Substance: LEVOTHYROXINE
  6. TYLENOL [Concomitant]
     Active Substance: ACETAMINOPHEN
  7. ONE A DAY [Concomitant]
  8. RISPERDAL CONSTA [Suspect]
     Active Substance: RISPERIDONE
  9. INVEGA SUSTENNA [Suspect]
     Active Substance: PALIPERIDONE PALMITATE

REACTIONS (1)
  - Infertility male [None]

NARRATIVE: CASE EVENT DATE: 201308
